FAERS Safety Report 19967608 (Version 1)
Quarter: 2021Q4

REPORT INFORMATION
  Report Type: Spontaneous
  Country: US (occurrence: US)
  Receive Date: 20211019
  Receipt Date: 20211019
  Transmission Date: 20220303
  Serious: Yes (Other)
  Sender: FDA-Public Use
  Company Number: US-LUPIN PHARMACEUTICALS INC.-2021-19611

PATIENT
  Age: 14 Year
  Sex: Female

DRUGS (2)
  1. METHYLPREDNISOLONE [Suspect]
     Active Substance: METHYLPREDNISOLONE
     Indication: Encephalitis
     Dosage: 500 MILLIGRAM, BID
     Route: 048
  2. LACOSAMIDE [Suspect]
     Active Substance: LACOSAMIDE
     Indication: Seizure
     Dosage: 75 MILLIGRAM, BID
     Route: 042

REACTIONS (4)
  - Drug ineffective [Unknown]
  - Condition aggravated [Unknown]
  - Drug ineffective for unapproved indication [Unknown]
  - Off label use [Unknown]
